FAERS Safety Report 9666246 (Version 1)
Quarter: 2013Q4

REPORT INFORMATION
  Report Type: Spontaneous
  Country: US (occurrence: None)
  Receive Date: 20131101
  Receipt Date: 20131101
  Transmission Date: 20140711
  Serious: No
  Sender: FDA-Public Use
  Company Number: None

PATIENT
  Sex: Male

DRUGS (1)
  1. CIMZIA [Suspect]
     Dosage: INJECT 1 SYRINGE (200 MG) UNDER THE SKIN EVERY 2 WEEKS
     Dates: start: 20130114

REACTIONS (2)
  - Pneumonia [None]
  - Respiratory failure [None]
